FAERS Safety Report 8118391-7 (Version None)
Quarter: 2012Q1

REPORT INFORMATION
  Report Type: 
  Country: None (occurrence: None)
  Receive Date: 20120207
  Receipt Date: 20120127
  Transmission Date: 20120608
  Serious: Yes (Hospitalization, Other)
  Sender: FDA-Public Use
  Company Number: US-BAYER-2011-092050

PATIENT
  Age: 24 Year
  Sex: Female
  Weight: 52.154 kg

DRUGS (6)
  1. DOXYCYCLINE [Concomitant]
     Indication: ACNE
     Dosage: UNK
     Route: 048
     Dates: start: 20090701, end: 20091001
  2. SULFACETAMIDE [Concomitant]
     Dosage: UNK
     Dates: start: 20090601
  3. YAZ [Suspect]
     Indication: ACNE
     Dosage: UNK
     Dates: start: 20080624, end: 20090709
  4. ACIPHEX [Concomitant]
     Indication: ABDOMINAL PAIN
     Dosage: UNK
     Dates: start: 20090801, end: 20090901
  5. CLINDAMYCIN [Concomitant]
     Dosage: UNK
     Dates: start: 20090601
  6. AMPICILLIN [Concomitant]
     Dosage: UNK
     Dates: start: 20090901

REACTIONS (2)
  - GALLBLADDER DISORDER [None]
  - CHOLECYSTITIS ACUTE [None]
